FAERS Safety Report 23453400 (Version 1)
Quarter: 2024Q1

REPORT INFORMATION
  Report Type: Spontaneous
  Country: IT (occurrence: IT)
  Receive Date: 20240129
  Receipt Date: 20240129
  Transmission Date: 20240410
  Serious: Yes (Hospitalization, Other)
  Sender: FDA-Public Use
  Company Number: IT-009507513-2309ITA006857

PATIENT
  Age: 54 Year
  Sex: Female

DRUGS (5)
  1. CARBOPLATIN [Suspect]
     Active Substance: CARBOPLATIN
     Indication: Triple negative breast cancer
     Dosage: 400 MG, QW
     Route: 042
     Dates: start: 20230103, end: 20230223
  2. PACLITAXEL [Suspect]
     Active Substance: PACLITAXEL
     Indication: Triple negative breast cancer
     Dosage: 120 MG, QW
     Route: 042
     Dates: start: 20230103, end: 20230223
  3. PEMBROLIZUMAB [Suspect]
     Active Substance: PEMBROLIZUMAB
     Indication: Triple negative breast cancer
     Dosage: 200 MG, TIW (EVERY 3 WEEKS; 2 VIALS)
     Route: 042
     Dates: start: 20230103, end: 20230103
  4. PEMBROLIZUMAB [Suspect]
     Active Substance: PEMBROLIZUMAB
     Dosage: 200 MG, TIW (EVERY 3 WEEKS; 2 VIALS)
     Route: 042
     Dates: start: 20230126, end: 20230126
  5. PEMBROLIZUMAB [Suspect]
     Active Substance: PEMBROLIZUMAB
     Dosage: 200 MG, TIW (EVERY 3 WEEKS; 2 VIALS)
     Route: 042
     Dates: start: 20230223, end: 20230223

REACTIONS (4)
  - Myelodysplastic syndrome [Recovered/Resolved]
  - Neutropenia [Recovered/Resolved]
  - Blood bilirubin increased [Unknown]
  - Hypertransaminasaemia [Unknown]

NARRATIVE: CASE EVENT DATE: 20230101
